FAERS Safety Report 4318388-9 (Version None)
Quarter: 2004Q1

REPORT INFORMATION
  Report Type: 
  Country: None (occurrence: None)
  Receive Date: 20040315
  Receipt Date: 20040301
  Transmission Date: 20041129
  Serious: Yes (Hospitalization)
  Sender: FDA-Public Use
  Company Number: NSADSS2002028028

PATIENT
  Age: 48 Year
  Sex: Female

DRUGS (6)
  1. INFLIXIMAB, RECOMBINANT (INFLIXIMAB, RECOMBINANT) LYOPHILIZED POWDER [Suspect]
     Indication: RHEUMATOID ARTHRITIS
     Dosage: 10 MG/KG, 1 IN 1 AS NECESSARY, INTRAVENOUS DRIP
     Route: 041
     Dates: start: 20020425, end: 20020425
  2. INFLIXIMAB, RECOMBINANT (INFLIXIMAB, RECOMBINANT) LYOPHILIZED POWDER [Suspect]
     Indication: RHEUMATOID ARTHRITIS
     Dosage: 10 MG/KG, 1 IN 1 AS NECESSARY, INTRAVENOUS DRIP
     Route: 041
     Dates: start: 20020510, end: 20020510
  3. INFLIXIMAB, RECOMBINANT (INFLIXIMAB, RECOMBINANT) LYOPHILIZED POWDER [Suspect]
     Indication: RHEUMATOID ARTHRITIS
     Dosage: 10 MG/KG, 1 IN 1 AS NECESSARY, INTRAVENOUS DRIP
     Route: 041
     Dates: start: 20020605, end: 20020605
  4. INFLIXIMAB, RECOMBINANT (INFLIXIMAB, RECOMBINANT) LYOPHILIZED POWDER [Suspect]
     Indication: RHEUMATOID ARTHRITIS
     Dosage: 10 MG/KG, 1 IN 1 AS NECESSARY, INTRAVENOUS DRIP
     Route: 041
     Dates: start: 20020808, end: 20020808
  5. METHOTREXATE [Concomitant]
  6. VITAGUTT (TOCOPHERYL ACETATE) [Concomitant]

REACTIONS (5)
  - BLINDNESS UNILATERAL [None]
  - CORNEAL ULCER [None]
  - PAIN [None]
  - SERRATIA INFECTION [None]
  - VISUAL ACUITY REDUCED [None]
